FAERS Safety Report 4894437-4 (Version None)
Quarter: 2006Q1

REPORT INFORMATION
  Report Type: 
  Country: None (occurrence: None)
  Receive Date: 20060127
  Receipt Date: 20060109
  Transmission Date: 20060701
  Serious: Yes (Death)
  Sender: FDA-Public Use
  Company Number: US-ROCHE-431514

PATIENT
  Age: 51 Year
  Sex: Male

DRUGS (19)
  1. FUZEON [Suspect]
     Route: 065
     Dates: start: 20050519
  2. LOPRESSOR [Concomitant]
  3. INVIRASE [Concomitant]
  4. TRUVADA [Concomitant]
  5. AMICAR [Concomitant]
  6. ALDACTONE [Concomitant]
  7. LASIX [Concomitant]
  8. MONOPRIL [Concomitant]
  9. PLETAL [Concomitant]
  10. ZETIA [Concomitant]
  11. PLAVIX [Concomitant]
  12. ISORDIL [Concomitant]
  13. NITROGLYCERIN [Concomitant]
  14. NEXIUM [Concomitant]
  15. AZITHROMYCIN [Concomitant]
  16. KALETRA [Concomitant]
  17. PROCRIT [Concomitant]
  18. ACTOS [Concomitant]
  19. AMARYL [Concomitant]

REACTIONS (2)
  - ANAEMIA [None]
  - NON-HODGKIN'S LYMPHOMA [None]
